FAERS Safety Report 5164659-6 (Version None)
Quarter: 2006Q4

REPORT INFORMATION
  Report Type: 
  Country: None (occurrence: None)
  Receive Date: 20061205
  Receipt Date: 20061121
  Transmission Date: 20070319
  Serious: Yes (Hospitalization)
  Sender: FDA-Public Use
  Company Number: JP-ELI_LILLY_AND_COMPANY-JP200611004553

PATIENT
  Age: 63 Year
  Sex: Male

DRUGS (4)
  1. HUMULIN R [Suspect]
     Indication: DIABETES MELLITUS
     Dosage: 6 U, 2/D
     Dates: start: 20061120, end: 20061120
  2. POTACOL-R [Concomitant]
  3. SOLITA-T3 INJECTION [Concomitant]
  4. PANSPORIN [Concomitant]

REACTIONS (1)
  - RASH [None]
